FAERS Safety Report 18954114 (Version 3)
Quarter: 2022Q3

REPORT INFORMATION
  Report Type: Spontaneous
  Country: JP (occurrence: JP)
  Receive Date: 20210301
  Receipt Date: 20220714
  Transmission Date: 20221027
  Serious: Yes (Hospitalization)
  Sender: FDA-Public Use
  Company Number: JP-GSKNCCC-CASE-01153012_AE-41078

PATIENT

DRUGS (2)
  1. MEPOLIZUMAB [Suspect]
     Active Substance: MEPOLIZUMAB
     Indication: Asthma
     Dosage: 100 MG, ONCE IN 4 WEEKS
     Route: 058
     Dates: start: 202003
  2. NUCALA [Suspect]
     Active Substance: MEPOLIZUMAB
     Indication: Asthma
     Dosage: 100 MG, ONCE IN 4 WEEKS
     Route: 058

REACTIONS (4)
  - Eczema [Unknown]
  - Rib fracture [Unknown]
  - Product dose omission issue [Unknown]
  - Off label use [Unknown]
